FAERS Safety Report 19237979 (Version 7)
Quarter: 2021Q3

REPORT INFORMATION
  Report Type: Report from Study
  Country: US (occurrence: US)
  Receive Date: 20210510
  Receipt Date: 20210823
  Transmission Date: 20211014
  Serious: Yes (Hospitalization)
  Sender: FDA-Public Use
  Company Number: US-ALKERMES INC.-ALK-2021-002328

PATIENT
  Age: 33 Year
  Sex: Female

DRUGS (24)
  1. VIVITROL [Suspect]
     Active Substance: NALTREXONE
     Indication: DRUG USE DISORDER
     Dosage: 380 MILLIGRAM, QMO
     Route: 030
     Dates: start: 20210427, end: 20210427
  2. CLONIDINE. [Concomitant]
     Active Substance: CLONIDINE
     Indication: PROPHYLAXIS
     Dosage: 0.8 MILLIGRAM, ONE TIME DOSE
     Route: 048
     Dates: start: 20210427, end: 20210427
  3. CLONAZEPAN [Concomitant]
     Active Substance: CLONAZEPAM
     Dosage: 3 MILLIGRAM, ONE TIME DOSE
     Route: 065
     Dates: start: 20210423, end: 20210423
  4. TRAZODONE [Concomitant]
     Active Substance: TRAZODONE HYDROCHLORIDE
     Indication: HYPOKALAEMIA
     Dosage: UNK
     Route: 048
  5. TRAZODONE [Concomitant]
     Active Substance: TRAZODONE HYDROCHLORIDE
     Dosage: 50 MILLIGRAM, AT BEDTIME PRN (TREATMENT)
     Route: 048
  6. NALTREXONE [Suspect]
     Active Substance: NALTREXONE
     Dosage: 1 MILLIGRAM, ONE TIME DOSE
     Route: 048
     Dates: start: 20210426, end: 20210426
  7. CLONAZEPAN [Concomitant]
     Active Substance: CLONAZEPAM
     Dosage: 2 MILLIGRAM, ONE TIME DOSE
     Route: 065
     Dates: start: 20210424, end: 20210424
  8. CLONIDINE. [Concomitant]
     Active Substance: CLONIDINE
     Dosage: 0.6 MILLIGRAM, ONE TIME DOSE
     Route: 048
     Dates: start: 20210426, end: 20210426
  9. CLONIDINE. [Concomitant]
     Active Substance: CLONIDINE
     Dosage: 0.4 MILLIGRAM, ONE TIME DOSE
     Route: 048
     Dates: start: 20210424, end: 20210424
  10. MAALOX [CALCIUM CARBONATE] [Concomitant]
     Active Substance: CALCIUM CARBONATE
     Indication: PRODUCT USED FOR UNKNOWN INDICATION
     Dosage: UNK
     Route: 065
  11. BUPRENORPHINE. [Suspect]
     Active Substance: BUPRENORPHINE
     Dosage: 4.0 MILLIGRAM, ONE TIME DOSE
     Route: 060
     Dates: start: 20210423, end: 20210423
  12. CLONAZEPAN [Concomitant]
     Active Substance: CLONAZEPAM
     Dosage: 1 MILLIGRAM, ONE TIME DOSE
     Route: 065
     Dates: start: 20210422, end: 20210422
  13. LOPERAMIDE [Concomitant]
     Active Substance: LOPERAMIDE
     Indication: PRODUCT USED FOR UNKNOWN INDICATION
     Dosage: UNK
     Route: 065
  14. CLONIDINE. [Concomitant]
     Active Substance: CLONIDINE
     Dosage: 0.6 MILLIGRAM, ONE TIME DOSE
     Route: 048
     Dates: start: 20210423, end: 20210423
  15. PROCHLORPERAZINE. [Concomitant]
     Active Substance: PROCHLORPERAZINE
     Indication: PRODUCT USED FOR UNKNOWN INDICATION
     Dosage: UNK
     Route: 065
  16. NALTREXONE [Suspect]
     Active Substance: NALTREXONE
     Indication: DRUG USE DISORDER
     Dosage: 4 MILLIGRAM, ONE TIME DOSE
     Route: 048
     Dates: start: 20210427, end: 20210427
  17. CLONIDINE. [Concomitant]
     Active Substance: CLONIDINE
     Dosage: 0.20 MILLIGRAM, ONE TIME DOSE
     Route: 048
     Dates: start: 20210422, end: 20210422
  18. CLONAZEPAN [Concomitant]
     Active Substance: CLONAZEPAM
     Dosage: 2 MILLIGRAM, ONE TIME DOSE
     Route: 065
     Dates: start: 20210425, end: 20210425
  19. BUPRENORPHINE. [Suspect]
     Active Substance: BUPRENORPHINE
     Indication: DRUG USE DISORDER
     Dosage: 1 MILLIGRAM, ONE TIME DOSE
     Route: 060
     Dates: start: 20210424, end: 20210424
  20. CLONIDINE. [Concomitant]
     Active Substance: CLONIDINE
     Dosage: 0.4 MILLIGRAM, ONE TIME DOSE
     Route: 048
     Dates: start: 20210425, end: 20210425
  21. CLONAZEPAN [Concomitant]
     Active Substance: CLONAZEPAM
     Indication: PROPHYLAXIS
     Dosage: 3 MILLIGRAM, ONE TIME DOSE
     Route: 065
     Dates: start: 20210427, end: 20210427
  22. CLONAZEPAN [Concomitant]
     Active Substance: CLONAZEPAM
     Dosage: 3 MILLIGRAM, ONE TIME DOSE
     Route: 065
     Dates: start: 20210426, end: 20210426
  23. ZOLPIDEM [Concomitant]
     Active Substance: ZOLPIDEM TARTRATE
     Indication: PRODUCT USED FOR UNKNOWN INDICATION
     Dosage: UNK
     Route: 065
  24. IBUPROFEN. [Concomitant]
     Active Substance: IBUPROFEN
     Indication: PRODUCT USED FOR UNKNOWN INDICATION
     Dosage: UNK
     Route: 065

REACTIONS (1)
  - Hypokalaemia [Recovered/Resolved]

NARRATIVE: CASE EVENT DATE: 20210503
